FAERS Safety Report 24249082 (Version 1)
Quarter: 2024Q3

REPORT INFORMATION
  Report Type: Spontaneous
  Country: US (occurrence: US)
  Receive Date: 20240826
  Receipt Date: 20240826
  Transmission Date: 20241017
  Serious: Yes (Hospitalization)
  Sender: PACIRA
  Company Number: US-ORG100016242-2024000543

PATIENT

DRUGS (2)
  1. EXPAREL [Suspect]
     Active Substance: BUPIVACAINE
     Indication: Nerve block
     Dosage: 1:2 MIXTURE OF 0.5% BUPIVACAINE AND LIPOSOMAL BUPIVACAINE
     Route: 065
  2. BUPIVACAINE [Suspect]
     Active Substance: BUPIVACAINE
     Indication: Nerve block
     Dosage: 1:2 MIXTURE OF 0.5% BUPIVACAINE AND LIPOSOMAL BUPIVACAINE
     Route: 065

REACTIONS (5)
  - Surgical procedure repeated [Unknown]
  - Conversion disorder [Unknown]
  - Off label use [Unknown]
  - Off label use [Unknown]
  - Pain [Unknown]
